FAERS Safety Report 8908557 (Version 1)
Quarter: 2012Q4

REPORT INFORMATION
  Report Type: 
  Country: JP (occurrence: JP)
  Receive Date: 20121114
  Receipt Date: 20121114
  Transmission Date: 20130627
  Serious: Yes (Hospitalization)
  Sender: FDA-Public Use
  Company Number: JP-ELI_LILLY_AND_COMPANY-JP201211000378

PATIENT
  Sex: Female

DRUGS (3)
  1. ZYPREXA [Suspect]
     Dosage: 5 mg, qd
     Route: 048
     Dates: start: 201210
  2. SODIUM VALPROATE [Concomitant]
     Dosage: UNK
     Dates: end: 201210
  3. SODIUM VALPROATE [Concomitant]
     Dosage: UNK
     Dates: start: 201210

REACTIONS (4)
  - Water intoxication [Unknown]
  - White blood cell count increased [Unknown]
  - Hypochloraemia [Unknown]
  - Blood creatine phosphokinase increased [Unknown]
